FAERS Safety Report 23379781 (Version 2)
Quarter: 2024Q1

REPORT INFORMATION
  Report Type: Report from Study
  Country: US (occurrence: US)
  Receive Date: 20240108
  Receipt Date: 20240314
  Transmission Date: 20240409
  Serious: Yes (Hospitalization)
  Sender: FDA-Public Use
  Company Number: US-ABBVIE-5525277

PATIENT
  Sex: Female

DRUGS (3)
  1. RINVOQ [Suspect]
     Active Substance: UPADACITINIB
     Indication: Rheumatoid arthritis
     Dosage: FORM STRENGTH: 15 MILLIGRAM, LAST ADMIN DATE OCT 2023
     Route: 048
     Dates: start: 20231013
  2. RINVOQ [Suspect]
     Active Substance: UPADACITINIB
     Indication: Rheumatoid arthritis
     Dosage: FORM STRENGTH: 15 MILLIGRAM
     Route: 048
     Dates: start: 20231017, end: 202312
  3. RINVOQ [Suspect]
     Active Substance: UPADACITINIB
     Indication: Rheumatoid arthritis
     Dosage: FORM STRENGTH: 15MG
     Route: 048
     Dates: start: 20231217, end: 2024

REACTIONS (7)
  - Influenza [Recovering/Resolving]
  - Night sweats [Not Recovered/Not Resolved]
  - Asthma [Recovering/Resolving]
  - Pain in extremity [Unknown]
  - Menopause [Unknown]
  - Illness [Unknown]
  - Erythema [Unknown]

NARRATIVE: CASE EVENT DATE: 20230101
